FAERS Safety Report 4979263-X (Version None)
Quarter: 2006Q2

REPORT INFORMATION
  Report Type: 
  Country: None (occurrence: None)
  Receive Date: 20060418
  Receipt Date: 20060403
  Transmission Date: 20061013
  Serious: Yes (Other)
  Sender: FDA-Public Use
  Company Number: DE200604000321

PATIENT
  Age: 25 Year
  Sex: Male

DRUGS (4)
  1. STRATTERA [Suspect]
     Indication: ATTENTION DEFICIT/HYPERACTIVITY DISORDER
     Dosage: SEE IMAGE, ORAL
     Route: 048
     Dates: end: 20060301
  2. STRATTERA [Suspect]
     Indication: ATTENTION DEFICIT/HYPERACTIVITY DISORDER
     Dosage: SEE IMAGE, ORAL
     Route: 048
     Dates: start: 20060101
  3. STRATTERA [Suspect]
     Indication: ATTENTION DEFICIT/HYPERACTIVITY DISORDER
     Dosage: SEE IMAGE, ORAL
     Route: 048
     Dates: start: 20060301
  4. TIAPRIDEX                (TIAPRIDE HYDROCHLORIDE) [Concomitant]

REACTIONS (5)
  - ANHEDONIA [None]
  - DECREASED APPETITE [None]
  - EARLY MORNING AWAKENING [None]
  - SOMNOLENCE [None]
  - SUICIDAL IDEATION [None]
